FAERS Safety Report 13095952 (Version 1)
Quarter: 2017Q1

REPORT INFORMATION
  Report Type: Spontaneous
  Country: CN (occurrence: CN)
  Receive Date: 20170109
  Receipt Date: 20170109
  Transmission Date: 20170428
  Serious: Yes (Death)
  Sender: FDA-Public Use
  Company Number: CN-ROCHE-1876200

PATIENT
  Age: 88 Year
  Sex: Male

DRUGS (2)
  1. XELODA [Suspect]
     Active Substance: CAPECITABINE
     Indication: COLON CANCER
     Route: 048
  2. XELODA [Suspect]
     Active Substance: CAPECITABINE
     Indication: METASTASES TO SMALL INTESTINE

REACTIONS (4)
  - Off label use [Fatal]
  - Cardiac failure [Fatal]
  - Fall [Unknown]
  - Asthenia [Unknown]

NARRATIVE: CASE EVENT DATE: 2015
